FAERS Safety Report 18981142 (Version 6)
Quarter: 2021Q2

REPORT INFORMATION
  Report Type: Report from Study
  Country: US (occurrence: US)
  Receive Date: 20210308
  Receipt Date: 20210522
  Transmission Date: 20210717
  Serious: No
  Sender: FDA-Public Use
  Company Number: NVSC2021US046362

PATIENT
  Age: 59 Year
  Sex: Female

DRUGS (1)
  1. COSENTYX [Suspect]
     Active Substance: SECUKINUMAB
     Indication: PSORIATIC ARTHROPATHY
     Dosage: 300 MG, QW (FIVE WEEKS AND 4 WEEKS)
     Route: 058
     Dates: start: 20210128

REACTIONS (11)
  - Dyspnoea [Unknown]
  - Ankle fracture [Unknown]
  - Arthralgia [Unknown]
  - Pain [Unknown]
  - Dizziness [Unknown]
  - Ear pain [Unknown]
  - Fatigue [Unknown]
  - Pruritus [Unknown]
  - Abdominal discomfort [Unknown]
  - Feeling abnormal [Unknown]
  - Nausea [Unknown]

NARRATIVE: CASE EVENT DATE: 20210212
